FAERS Safety Report 17892470 (Version 1)
Quarter: 2020Q2

REPORT INFORMATION
  Report Type: Spontaneous
  Country: NL (occurrence: NL)
  Receive Date: 20200613
  Receipt Date: 20200613
  Transmission Date: 20200714
  Serious: Yes (Other)
  Sender: FDA-Public Use
  Company Number: NL-AUROBINDO-AUR-APL-2020-028734

PATIENT
  Age: 52 Year
  Sex: Female

DRUGS (2)
  1. CITALOPRAM [Suspect]
     Active Substance: CITALOPRAM HYDROBROMIDE
     Indication: PRODUCT USED FOR UNKNOWN INDICATION
     Dosage: UNK
     Route: 065
  2. ATTENTIN (DEXAMFETAMINE SULFATE) [Suspect]
     Active Substance: DEXTROAMPHETAMINE SULFATE
     Indication: ATTENTION DEFICIT HYPERACTIVITY DISORDER
     Dosage: 22.5 MILLIGRAM, ONCE A DAY
     Route: 048
     Dates: start: 201906, end: 202005

REACTIONS (6)
  - Visual impairment [Unknown]
  - Product use issue [Recovered/Resolved]
  - Retinal toxicity [Unknown]
  - Off label use [Recovered/Resolved]
  - Colour blindness acquired [Unknown]
  - Night blindness [Unknown]

NARRATIVE: CASE EVENT DATE: 201906
